FAERS Safety Report 14750504 (Version 1)
Quarter: 2018Q2

REPORT INFORMATION
  Report Type: Spontaneous
  Country: US (occurrence: US)
  Receive Date: 20180406
  Receipt Date: 20180406
  Transmission Date: 20180711
  Serious: Yes (Hospitalization)
  Sender: FDA-Public Use
  Company Number: None

PATIENT
  Sex: Female

DRUGS (4)
  1. HUMIRA [Suspect]
     Active Substance: ADALIMUMAB
     Indication: CROHN^S DISEASE
     Route: 058
     Dates: start: 20170926
  2. CARAFATE [Concomitant]
     Active Substance: SUCRALFATE
  3. PAROXETINE. [Concomitant]
     Active Substance: PAROXETINE
  4. GUANFACINE. [Concomitant]
     Active Substance: GUANFACINE

REACTIONS (7)
  - Drug dose omission [None]
  - Diarrhoea [None]
  - Abdominal pain [None]
  - Inappropriate schedule of drug administration [None]
  - Weight fluctuation [None]
  - Condition aggravated [None]
  - Blood pressure increased [None]
